FAERS Safety Report 14740580 (Version 1)
Quarter: 2018Q2

REPORT INFORMATION
  Report Type: Report from Study
  Country: GB (occurrence: US)
  Receive Date: 20180410
  Receipt Date: 20180410
  Transmission Date: 20180711
  Serious: Yes (Death)
  Sender: FDA-Public Use
  Company Number: GB-BAYER-2018-066345

PATIENT
  Sex: Female

DRUGS (4)
  1. TAMBOCOR [Suspect]
     Active Substance: FLECAINIDE ACETATE
  2. SERETIDE [Concomitant]
     Active Substance: FLUTICASONE PROPIONATE\SALMETEROL XINAFOATE
  3. SPIRIVA [Concomitant]
     Active Substance: TIOTROPIUM BROMIDE MONOHYDRATE
  4. MOXIFLOXACIN. [Suspect]
     Active Substance: MOXIFLOXACIN

REACTIONS (27)
  - Electrocardiogram QT prolonged [Fatal]
  - Tricuspid valve incompetence [Fatal]
  - Aneurysm [Fatal]
  - Circulatory collapse [Fatal]
  - Dilatation ventricular [Fatal]
  - PO2 increased [Fatal]
  - Aspartate aminotransferase increased [Fatal]
  - Cardiac arrest [Fatal]
  - Haemoglobin decreased [Fatal]
  - Mitral valve incompetence [Fatal]
  - Vasodilatation [Fatal]
  - Atrial fibrillation [Fatal]
  - Blood glucose increased [Fatal]
  - Conduction disorder [Fatal]
  - Torsade de pointes [Fatal]
  - Dilatation atrial [Fatal]
  - Nervous system disorder [Fatal]
  - Ventricular fibrillation [Fatal]
  - Blood albumin decreased [Fatal]
  - Blood potassium decreased [Fatal]
  - Haematocrit decreased [Fatal]
  - Platelet count increased [Fatal]
  - White blood cell count increased [Fatal]
  - Blood calcium decreased [Fatal]
  - Blood lactate dehydrogenase increased [Fatal]
  - C-reactive protein increased [Fatal]
  - Drug interaction [Fatal]
